FAERS Safety Report 14449981 (Version 2)
Quarter: 2018Q1

REPORT INFORMATION
  Report Type: Report from Study
  Country: None (occurrence: US)
  Receive Date: 20180129
  Receipt Date: 20180131
  Transmission Date: 20180509
  Serious: Yes (Other)
  Sender: FDA-Public Use
  Company Number: US-ABBVIE-17K-163-1869358-00

PATIENT
  Sex: Female

DRUGS (3)
  1. HUMIRA [Suspect]
     Active Substance: ADALIMUMAB
     Indication: RHEUMATOID ARTHRITIS
     Route: 058
     Dates: start: 20170121, end: 201710
  2. HUMIRA [Suspect]
     Active Substance: ADALIMUMAB
     Indication: OSTEOARTHRITIS
     Route: 058
     Dates: start: 20171225
  3. METHOTREXATE. [Concomitant]
     Active Substance: METHOTREXATE
     Indication: PRODUCT USED FOR UNKNOWN INDICATION

REACTIONS (17)
  - Joint swelling [Not Recovered/Not Resolved]
  - Neck pain [Unknown]
  - Trigger finger [Unknown]
  - Arthritis [Not Recovered/Not Resolved]
  - Procedural pain [Recovering/Resolving]
  - Therapeutic response shortened [Unknown]
  - Injection site pruritus [Unknown]
  - Pain in extremity [Unknown]
  - Sleep disorder [Unknown]
  - Joint stiffness [Not Recovered/Not Resolved]
  - Arthralgia [Not Recovered/Not Resolved]
  - Nasopharyngitis [Recovered/Resolved]
  - Carpal tunnel syndrome [Unknown]
  - Hand fracture [Unknown]
  - Headache [Not Recovered/Not Resolved]
  - Gastric disorder [Unknown]
  - Injection site swelling [Unknown]

NARRATIVE: CASE EVENT DATE: 2017
